FAERS Safety Report 25422606 (Version 2)
Quarter: 2025Q3

REPORT INFORMATION
  Report Type: Spontaneous
  Country: EU (occurrence: EU)
  Receive Date: 20250611
  Receipt Date: 20250807
  Transmission Date: 20251021
  Serious: Yes (Death, Other)
  Sender: ROCHE
  Company Number: None

PATIENT
  Age: 47 Year
  Sex: Female

DRUGS (11)
  1. TRASTUZUMAB [Suspect]
     Active Substance: TRASTUZUMAB
     Indication: Breast cancer metastatic
     Route: 065
     Dates: start: 20230825
  2. TRASTUZUMAB [Suspect]
     Active Substance: TRASTUZUMAB
     Route: 065
  3. TRASTUZUMAB [Suspect]
     Active Substance: TRASTUZUMAB
     Route: 065
     Dates: start: 202412
  4. CAPECITABINE [Suspect]
     Active Substance: CAPECITABINE
     Indication: Breast cancer metastatic
     Dosage: C1: 1650 MG, 2X/DAY
     Route: 065
     Dates: start: 20230829, end: 20230912
  5. CAPECITABINE [Suspect]
     Active Substance: CAPECITABINE
     Dosage: C2: 1650 MG, 2X/DAY
     Route: 065
  6. LAPATINIB [Suspect]
     Active Substance: LAPATINIB
     Indication: Breast cancer metastatic
     Route: 065
  7. TUCATINIB [Suspect]
     Active Substance: TUCATINIB
     Indication: Breast cancer metastatic
     Dosage: C1D1: 300 MG, 1X/DAY
     Route: 065
     Dates: start: 20230825, end: 20230918
  8. TUCATINIB [Suspect]
     Active Substance: TUCATINIB
     Dosage: C2: 250 MG, 2X/DAY
     Route: 065
  9. TRASTUZUMAB DERUXTECAN [Suspect]
     Active Substance: TRASTUZUMAB DERUXTECAN
     Indication: Breast cancer metastatic
     Route: 065
     Dates: start: 202403
  10. DOCETAXEL [Suspect]
     Active Substance: DOCETAXEL
     Indication: Breast cancer metastatic
     Route: 065
     Dates: start: 202412
  11. ESOMEPRAZOLE [Concomitant]
     Active Substance: ESOMEPRAZOLE
     Dosage: 20 MG, DAILY - EVERY 24 HOURS
     Route: 065

REACTIONS (8)
  - Breast cancer metastatic [Fatal]
  - Malignant neoplasm progression [Fatal]
  - Metastases to bone [Not Recovered/Not Resolved]
  - Hepatic function abnormal [Unknown]
  - Diarrhoea [Unknown]
  - Hypertransaminasaemia [Unknown]
  - Asthenia [Unknown]
  - Alopecia [Unknown]
